FAERS Safety Report 7653048-8 (Version None)
Quarter: 2011Q3

REPORT INFORMATION
  Report Type: 
  Country: None (occurrence: None)
  Receive Date: 20110803
  Receipt Date: 20110727
  Transmission Date: 20111222
  Serious: Yes (Hospitalization)
  Sender: FDA-Public Use
  Company Number: PHHY2011JP67837

PATIENT
  Age: 60 Year
  Sex: Male

DRUGS (1)
  1. TICLOPIDINE HCL [Suspect]
     Route: 048

REACTIONS (2)
  - PNEUMONIA [None]
  - EOSINOPHIL COUNT INCREASED [None]
